FAERS Safety Report 11250420 (Version 1)
Quarter: 2015Q3

REPORT INFORMATION
  Report Type: Spontaneous
  Country: US (occurrence: US)
  Receive Date: 20150708
  Receipt Date: 20150708
  Transmission Date: 20151125
  Serious: No
  Sender: FDA-Public Use
  Company Number: US-ELI_LILLY_AND_COMPANY-US201010003247

PATIENT
  Age: 88 Year

DRUGS (1)
  1. SYMBYAX [Suspect]
     Active Substance: FLUOXETINE HYDROCHLORIDE\OLANZAPINE
     Indication: DEMENTIA
     Dosage: 0.12 (3/25) MG, UNKNOWN
     Route: 065

REACTIONS (2)
  - Off label use [Unknown]
  - Diabetes mellitus [Unknown]
